FAERS Safety Report 19701305 (Version 1)
Quarter: 2021Q3

REPORT INFORMATION
  Report Type: Spontaneous
  Country: IT (occurrence: IT)
  Receive Date: 20210814
  Receipt Date: 20210814
  Transmission Date: 20211014
  Serious: Yes (Other)
  Sender: FDA-Public Use
  Company Number: IT-AMGEN-ITASP2021122208

PATIENT
  Age: 49 Year
  Sex: Female
  Weight: 62 kg

DRUGS (2)
  1. PACLITAXEL ACCORD [Suspect]
     Active Substance: PACLITAXEL
     Indication: BREAST CANCER
     Dosage: 114.8 MILLIGRAM
     Route: 042
     Dates: start: 20210422, end: 20210629
  2. MVASI [Suspect]
     Active Substance: BEVACIZUMAB-AWWB
     Indication: BREAST CANCER
     Route: 042
     Dates: start: 20210422, end: 20210629

REACTIONS (1)
  - Hypertransaminasaemia [Recovering/Resolving]

NARRATIVE: CASE EVENT DATE: 20210706
